FAERS Safety Report 22245151 (Version 1)
Quarter: 2023Q2

REPORT INFORMATION
  Report Type: Spontaneous
  Country: UA (occurrence: UA)
  Receive Date: 20230424
  Receipt Date: 20230424
  Transmission Date: 20230722
  Serious: Yes (Other)
  Sender: FDA-Public Use
  Company Number: UA-002147023-NVSC2023UA090306

PATIENT
  Age: 71 Year
  Sex: Male

DRUGS (7)
  1. CLOFAZIMINE [Suspect]
     Active Substance: CLOFAZIMINE
     Indication: Pulmonary tuberculosis
     Dosage: UNK
     Route: 065
     Dates: start: 20220311
  2. LEVOFLOXACIN [Suspect]
     Active Substance: LEVOFLOXACIN
     Indication: Pulmonary tuberculosis
     Dosage: UNK
     Route: 065
     Dates: start: 20220311
  3. BEDAQUILINE [Suspect]
     Active Substance: BEDAQUILINE
     Indication: Pulmonary tuberculosis
     Dosage: UNK
     Route: 065
     Dates: start: 20220311
  4. GLIMEPIRIDE [Concomitant]
     Active Substance: GLIMEPIRIDE
     Indication: Type 2 diabetes mellitus
     Dosage: UNK
     Route: 065
  5. INSULIN NOS [Concomitant]
     Active Substance: INSULIN NOS
     Indication: Type 2 diabetes mellitus
     Dosage: UNK
     Route: 065
     Dates: start: 202202
  6. LINEZOLID [Concomitant]
     Active Substance: LINEZOLID
     Indication: Pulmonary tuberculosis
     Dosage: UNK
     Route: 065
     Dates: start: 20220311
  7. CYCLOSERINE [Concomitant]
     Active Substance: CYCLOSERINE
     Indication: Pulmonary tuberculosis
     Dosage: UNK
     Route: 065
     Dates: start: 20220311

REACTIONS (4)
  - Arrhythmia [Recovered/Resolved]
  - Electrocardiogram QT prolonged [Unknown]
  - Alanine aminotransferase increased [Not Recovered/Not Resolved]
  - Aspartate aminotransferase increased [Recovered/Resolved]
